FAERS Safety Report 23540491 (Version 1)
Quarter: 2024Q1

REPORT INFORMATION
  Report Type: Spontaneous
  Country: US (occurrence: US)
  Receive Date: 20240219
  Receipt Date: 20240219
  Transmission Date: 20240410
  Serious: No
  Sender: FDA-Public Use
  Company Number: US-Stemline Therapeutics, Inc.-2023ST004727

PATIENT
  Sex: Female

DRUGS (2)
  1. ORSERDU [Suspect]
     Active Substance: ELACESTRANT
     Indication: Product used for unknown indication
     Route: 048
     Dates: start: 20230706
  2. PIQRAY [Concomitant]
     Active Substance: ALPELISIB
     Indication: Product used for unknown indication

REACTIONS (14)
  - Product dose omission issue [Recovered/Resolved]
  - Illness [Unknown]
  - Blood glucose decreased [Unknown]
  - Taste disorder [Unknown]
  - Gingival pain [Unknown]
  - Cheilitis [Unknown]
  - Dry mouth [Unknown]
  - Hair texture abnormal [Unknown]
  - Dry skin [Unknown]
  - Oral discomfort [Unknown]
  - Dry throat [Unknown]
  - Nausea [Unknown]
  - Vomiting [Unknown]
  - Blood creatinine increased [Unknown]
